FAERS Safety Report 20231434 (Version 2)
Quarter: 2022Q2

REPORT INFORMATION
  Report Type: Report from Study
  Country: MX (occurrence: MX)
  Receive Date: 20211227
  Receipt Date: 20220621
  Transmission Date: 20220720
  Serious: Yes (Other)
  Sender: FDA-Public Use
  Company Number: MX-NOVARTISPH-NVSC2021MX295510

PATIENT
  Sex: Female
  Weight: 75 kg

DRUGS (4)
  1. EXELON [Suspect]
     Active Substance: RIVASTIGMINE TARTRATE
     Indication: Memory impairment
     Dosage: 4.6 MG, QD PATCH 5 (CM2)
     Route: 003
  2. EXELON [Suspect]
     Active Substance: RIVASTIGMINE TARTRATE
     Dosage: 4.6 MG, QD PATCH 5 (CM2)
     Route: 003
  3. EXELON [Suspect]
     Active Substance: RIVASTIGMINE TARTRATE
     Dosage: 4.6 MG, QD PATCH 5 (CM2)
     Route: 003
     Dates: start: 2012
  4. OLMESARTAN MEDOXOMIL [Concomitant]
     Active Substance: OLMESARTAN MEDOXOMIL
     Indication: Hypertension
     Dosage: 1 DOSAGE FORM, QD (40 MG)
     Route: 048

REACTIONS (10)
  - Cardiac failure chronic [Not Recovered/Not Resolved]
  - Cataract [Recovered/Resolved with Sequelae]
  - Blindness [Unknown]
  - Infarction [Recovered/Resolved]
  - Stress [Unknown]
  - Nervousness [Unknown]
  - Cardiac disorder [Unknown]
  - Ill-defined disorder [Unknown]
  - Pain in extremity [Not Recovered/Not Resolved]
  - Herpes zoster [Not Recovered/Not Resolved]

NARRATIVE: CASE EVENT DATE: 20190101
